FAERS Safety Report 16552607 (Version 1)
Quarter: 2019Q3

REPORT INFORMATION
  Report Type: Spontaneous
  Country: US (occurrence: US)
  Receive Date: 20190710
  Receipt Date: 20190710
  Transmission Date: 20191004
  Serious: No
  Sender: FDA-Public Use
  Company Number: US-PFIZER INC-2019292594

PATIENT
  Age: 71 Year
  Sex: Male
  Weight: 84.37 kg

DRUGS (4)
  1. VORICONAZOLE. [Suspect]
     Active Substance: VORICONAZOLE
     Dosage: 600 MG, DAILY (300 MG IN THE MORNING AND 300 MG AT NIGHT)
     Route: 048
  2. DEXILANT [Concomitant]
     Active Substance: DEXLANSOPRAZOLE
     Indication: HIATUS HERNIA
     Dosage: 60 MG, DAILY
     Route: 048
  3. VORICONAZOLE. [Suspect]
     Active Substance: VORICONAZOLE
     Indication: FUNGAL INFECTION
     Dosage: 200 MG, 2X/DAY,((200MG IN THE MORNING AND NIGHT)
     Route: 048
     Dates: start: 20190412
  4. VORICONAZOLE. [Suspect]
     Active Substance: VORICONAZOLE
     Dosage: 200 MG, 3X/DAY,(200MG EVERY 8 HOURS)
     Route: 048

REACTIONS (3)
  - Drug level below therapeutic [Not Recovered/Not Resolved]
  - Flushing [Not Recovered/Not Resolved]
  - Intentional product misuse [Unknown]
